FAERS Safety Report 5118268-5 (Version None)
Quarter: 2006Q4

REPORT INFORMATION
  Report Type: 
  Country: None (occurrence: None)
  Receive Date: 20061002
  Receipt Date: 20060728
  Transmission Date: 20070319
  Serious: No
  Sender: FDA-Public Use
  Company Number: US-BRISTOL-MYERS SQUIBB COMPANY-13459730

PATIENT
  Age: 83 Year
  Sex: Female
  Weight: 41 kg

DRUGS (7)
  1. ORENCIA [Suspect]
     Dates: start: 20060404
  2. PEPTO-BISMOL [Concomitant]
     Indication: DIARRHOEA
  3. IMODIUM [Concomitant]
     Indication: DIARRHOEA
  4. RISPERIDONE [Concomitant]
     Dates: start: 20050101
  5. ACTONEL [Concomitant]
  6. PAXIL [Concomitant]
  7. OCUVITE [Concomitant]

REACTIONS (6)
  - ALOPECIA [None]
  - DIARRHOEA [None]
  - DYSPNOEA [None]
  - FATIGUE [None]
  - FUNGAL INFECTION [None]
  - MALAISE [None]
